FAERS Safety Report 4708275-6 (Version None)
Quarter: 2005Q3

REPORT INFORMATION
  Report Type: 
  Country: None (occurrence: None)
  Receive Date: 20050705
  Receipt Date: 20050705
  Transmission Date: 20060218
  Serious: Yes (Death)
  Sender: FDA-Public Use
  Company Number: None

PATIENT
  Age: 69 Year
  Sex: Male
  Weight: 68.0396 kg

DRUGS (1)
  1. VYTORIN [Suspect]
     Indication: BLOOD CHOLESTEROL INCREASED
     Dosage: 1 DAILY ORAL
     Route: 048
     Dates: start: 20050101, end: 20050526

REACTIONS (5)
  - CONFUSIONAL STATE [None]
  - HAEMOLYTIC ANAEMIA [None]
  - HEPATITIS [None]
  - HYPOTHYROIDISM [None]
  - PYREXIA [None]
